FAERS Safety Report 6675306-6 (Version None)
Quarter: 2010Q2

REPORT INFORMATION
  Report Type: 
  Country: None (occurrence: None)
  Receive Date: 20100409
  Receipt Date: 20100210
  Transmission Date: 20101027
  Serious: Yes (Other)
  Sender: FDA-Public Use
  Company Number: A0841034A

PATIENT
  Age: 48 Year
  Sex: Female

DRUGS (3)
  1. TYKERB [Suspect]
     Route: 048
  2. XELODA [Suspect]
     Indication: DRUG USE FOR UNKNOWN INDICATION
     Route: 065
  3. LOPERAMIDE [Concomitant]

REACTIONS (2)
  - DIARRHOEA [None]
  - RASH [None]
